FAERS Safety Report 8328833-X (Version None)
Quarter: 2012Q2

REPORT INFORMATION
  Report Type: 
  Country: None (occurrence: None)
  Receive Date: 20120502
  Receipt Date: 20120420
  Transmission Date: 20120825
  Serious: Yes (Life-Threatening, Other)
  Sender: FDA-Public Use
  Company Number: JP-PFIZER INC-2012096273

PATIENT
  Age: 84 Year
  Sex: Female

DRUGS (9)
  1. HOKUNALIN [Concomitant]
     Dosage: 2 MG/DAY
     Dates: start: 20111205, end: 20120411
  2. LAXOBERON [Concomitant]
     Dosage: 10 DROP/DAY
     Route: 048
     Dates: end: 20120411
  3. PARENTERAL [Concomitant]
     Dosage: 400 ML/DAY
     Route: 048
     Dates: end: 20120411
  4. WARFARIN [Interacting]
     Indication: PULMONARY EMBOLISM
     Dosage: 1.5 MG, UNK
     Route: 048
     Dates: start: 20101007, end: 20120411
  5. WARFARIN [Interacting]
     Indication: DEEP VEIN THROMBOSIS
  6. MUCOSTA [Concomitant]
     Dosage: 200 MG,/DAY
     Route: 048
     Dates: start: 20120314, end: 20120411
  7. ZOSYN [Suspect]
     Indication: PNEUMONIA ASPIRATION
     Dosage: 4.5 G, 3X/DAY
     Route: 041
     Dates: start: 20120409, end: 20120411
  8. LOXOPROFEN SODIUM [Concomitant]
     Dosage: UNK
     Dates: start: 20120303, end: 20120411
  9. LANSOPRAZOLE [Concomitant]
     Dosage: 15 MG,/DAY
     Route: 048
     Dates: start: 20120131, end: 20120411

REACTIONS (2)
  - CEREBRAL HAEMORRHAGE [None]
  - DRUG INTERACTION [None]
